FAERS Safety Report 8177186-9 (Version None)
Quarter: 2012Q1

REPORT INFORMATION
  Report Type: 
  Country: None (occurrence: None)
  Receive Date: 20120301
  Receipt Date: 20120220
  Transmission Date: 20120608
  Serious: Yes (Other)
  Sender: FDA-Public Use
  Company Number: FR-VERTEX PHARMACEUTICALS INC.-000000000000000266

PATIENT
  Sex: Male

DRUGS (6)
  1. INCIVO (TELAPREVIR) [Suspect]
     Indication: HEPATITIS C
     Dosage: DOSAGE FORM: TABLET
     Route: 048
     Dates: start: 20111121, end: 20111223
  2. ACETAMINOPHEN [Concomitant]
     Dosage: ONE HOUR BEFORE PEGASYS* INJECTION
     Dates: start: 20111121
  3. ASPEGIC 1000 [Concomitant]
  4. ATORVASTATIN [Concomitant]
  5. COPEGUS [Concomitant]
     Indication: HEPATITIS C
     Dosage: 200 MG : 2-0-3
     Route: 048
     Dates: start: 20111121, end: 20111223
  6. PEGASYS [Concomitant]
     Indication: HEPATITIS C
     Dosage: DOSAGE FORM: SOLUTION FOR INJECTION, ON EACH MONDAYS
     Route: 058
     Dates: start: 20111121, end: 20111223

REACTIONS (2)
  - ALTERED STATE OF CONSCIOUSNESS [None]
  - ENCEPHALOPATHY [None]
